FAERS Safety Report 14337658 (Version 2)
Quarter: 2018Q1

REPORT INFORMATION
  Report Type: Spontaneous
  Country: JP (occurrence: JP)
  Receive Date: 20171229
  Receipt Date: 20180108
  Transmission Date: 20180509
  Serious: Yes (Other)
  Sender: FDA-Public Use
  Company Number: JP-PFIZER INC-2017528712

PATIENT
  Age: 8 Decade
  Sex: Male

DRUGS (1)
  1. ESTRACYT [Suspect]
     Active Substance: ESTRAMUSTINE PHOSPHATE SODIUM
     Dosage: 313.4 MG, UNK
     Route: 048

REACTIONS (1)
  - Appendicitis [Unknown]
